FAERS Safety Report 5834897-5 (Version None)
Quarter: 2008Q3

REPORT INFORMATION
  Report Type: 
  Country: None (occurrence: None)
  Receive Date: 20080804
  Receipt Date: 20080714
  Transmission Date: 20090109
  Serious: Yes (Hospitalization)
  Sender: FDA-Public Use
  Company Number: 2007BI025017

PATIENT
  Age: 54 Year
  Sex: Female
  Weight: 66 kg

DRUGS (3)
  1. AVONEX [Suspect]
     Indication: MULTIPLE SCLEROSIS
     Dosage: 30 UG;QW; IM
     Route: 030
     Dates: start: 20060701
  2. PRESSAT [Concomitant]
  3. GLATIRAMER [Concomitant]

REACTIONS (3)
  - BACK PAIN [None]
  - BENIGN NEOPLASM OF EYE [None]
  - OPTIC NEURITIS [None]
